FAERS Safety Report 5190082-4 (Version None)
Quarter: 2006Q4

REPORT INFORMATION
  Report Type: 
  Country: None (occurrence: None)
  Receive Date: 20061222
  Receipt Date: 20061211
  Transmission Date: 20070319
  Serious: Yes (Hospitalization)
  Sender: FDA-Public Use
  Company Number: US-JNJFOC-20061202754

PATIENT
  Sex: Male
  Weight: 71.67 kg

DRUGS (11)
  1. IBUPROFEN [Suspect]
     Indication: DRUG USE FOR UNKNOWN INDICATION
  2. TYLENOL [Suspect]
  3. TYLENOL [Suspect]
     Indication: DRUG USE FOR UNKNOWN INDICATION
  4. EXCEDRIN (MIGRAINE) [Suspect]
     Indication: DRUG USE FOR UNKNOWN INDICATION
  5. SINUS MEDICATION [Suspect]
     Indication: PAIN IN JAW
  6. SINUS MEDICATION [Suspect]
     Indication: SINUS HEADACHE
  7. EXTRA STRENGTH BAYER PLUS [Suspect]
     Route: 048
  8. EXTRA STRENGTH BAYER PLUS [Suspect]
     Indication: PAIN IN JAW
     Route: 048
  9. EXTRA STRENGTH BAYER PLUS [Suspect]
     Indication: CHEST PAIN
     Route: 048
  10. OMEGA 3 [Concomitant]
  11. GLUCOSAMINE/CHONDROITIN [Concomitant]

REACTIONS (2)
  - CORONARY ARTERY DISEASE [None]
  - MYOCARDIAL INFARCTION [None]
